FAERS Safety Report 18111019 (Version 2)
Quarter: 2020Q3

REPORT INFORMATION
  Report Type: Spontaneous
  Country: JP (occurrence: JP)
  Receive Date: 20200804
  Receipt Date: 20200904
  Transmission Date: 20201103
  Serious: Yes (Hospitalization)
  Sender: FDA-Public Use
  Company Number: JP-SUNOVION-2020DSP008876

PATIENT
  Age: 9 Decade
  Sex: Female

DRUGS (1)
  1. LATUDA [Suspect]
     Active Substance: LURASIDONE HYDROCHLORIDE
     Indication: SCHIZOPHRENIA
     Dosage: 20 MG, QD
     Route: 048

REACTIONS (3)
  - Drug ineffective [Unknown]
  - Prescribed underdose [Unknown]
  - Off label use [Unknown]

NARRATIVE: CASE EVENT DATE: 20200714
